FAERS Safety Report 8796803 (Version 2)
Quarter: 2012Q4

REPORT INFORMATION
  Report Type: 
  Country: US (occurrence: US)
  Receive Date: 20120919
  Receipt Date: 20121016
  Transmission Date: 20130627
  Serious: Yes (Hospitalization, Other)
  Sender: FDA-Public Use
  Company Number: US-009507513-2009SP017659

PATIENT

DRUGS (1)
  1. NUVARING [Suspect]
     Indication: CONTRACEPTION
     Dosage: 1 DF, QM
     Route: 067
     Dates: start: 200506, end: 200610

REACTIONS (21)
  - Caesarean section [Unknown]
  - Dysuria [Unknown]
  - Thrombosis [Unknown]
  - Female sterilisation [Unknown]
  - Splenomegaly [Unknown]
  - Polyp [Unknown]
  - Fall [Unknown]
  - Ligament sprain [Unknown]
  - Stress [Unknown]
  - Weight decreased [Unknown]
  - Ovarian cyst [Not Recovered/Not Resolved]
  - Chest pain [Unknown]
  - Cholelithiasis [Unknown]
  - Anxiety [Unknown]
  - Insomnia [Unknown]
  - Pain in extremity [Unknown]
  - Menorrhagia [Unknown]
  - Abdominal distension [Unknown]
  - Migraine [Unknown]
  - Pregnancy [Recovered/Resolved]
  - Nausea [Unknown]
